FAERS Safety Report 8127037-3 (Version None)
Quarter: 2012Q1

REPORT INFORMATION
  Report Type: 
  Country: None (occurrence: None)
  Receive Date: 20120210
  Receipt Date: 20120209
  Transmission Date: 20120608
  Serious: Yes (Other)
  Sender: FDA-Public Use
  Company Number: GB-AMGEN-GBRSP2011057508

PATIENT
  Sex: Male

DRUGS (10)
  1. ADCAL D3 [Concomitant]
  2. CITALOPRAM HYDROBROMIDE [Concomitant]
     Dosage: 20 MG, UNK
  3. ALENDRONATE SODIUM [Concomitant]
     Dosage: 70 MG, QWK
  4. NPLATE [Suspect]
     Indication: PRODUCT USED FOR UNKNOWN INDICATION
     Dosage: UNK
     Route: 058
     Dates: start: 20110629
  5. LOPERAMIDE HCL [Concomitant]
     Dosage: 2 MG, UNK
  6. PLATELETS [Concomitant]
     Dosage: 2 UNIT, UNK
  7. TRANEXAMIC ACID [Concomitant]
     Dosage: 1 G, UNK
  8. PENICILLIN V [Concomitant]
     Dosage: 250 MG, UNK
  9. OMEPRAZOLE [Concomitant]
     Dosage: 20 MG, QD
  10. METOCLOPRAMIDE HCL [Concomitant]
     Dosage: 10 MG, UNK

REACTIONS (7)
  - OROPHARYNGEAL BLISTERING [None]
  - DENTAL CARE [None]
  - HAEMATURIA [None]
  - CONDITION AGGRAVATED [None]
  - HAEMORRHAGIC DISORDER [None]
  - PLATELET COUNT DECREASED [None]
  - PLATELET COUNT INCREASED [None]
